FAERS Safety Report 8294616-2 (Version None)
Quarter: 2012Q2

REPORT INFORMATION
  Report Type: 
  Country: None (occurrence: None)
  Receive Date: 20120418
  Receipt Date: 20120405
  Transmission Date: 20120825
  Serious: Yes (Other)
  Sender: FDA-Public Use
  Company Number: GB-BAYER-2012-031073

PATIENT
  Age: 21 Year
  Sex: Female

DRUGS (4)
  1. LEVONORGESTREL + ETHINYL ESTRADIOL [Concomitant]
     Dosage: UNK
     Dates: start: 20080101
  2. CLOTRIMAZOLE [Suspect]
     Indication: VULVOVAGINAL CANDIDIASIS
  3. MEBEVERINE [Concomitant]
  4. LAMOTRGINE [Concomitant]
     Dosage: 75 MG, UNK

REACTIONS (2)
  - VAGINAL HAEMORRHAGE [None]
  - VAGINAL DISCHARGE [None]
